FAERS Safety Report 14188461 (Version 2)
Quarter: 2018Q4

REPORT INFORMATION
  Report Type: Spontaneous
  Country: US (occurrence: US)
  Receive Date: 20171114
  Receipt Date: 20181205
  Transmission Date: 20190204
  Serious: No
  Sender: FDA-Public Use
  Company Number: US-BAUSCH-BL-2016-032298

PATIENT
  Age: 76 Year
  Sex: Female
  Weight: 90.8 kg

DRUGS (4)
  1. APRISO [Suspect]
     Active Substance: MESALAMINE
     Dosage: 2 CAPSULES ONCE A DAY
     Route: 048
     Dates: start: 20171204
  2. APRISO [Suspect]
     Active Substance: MESALAMINE
     Indication: CROHN^S DISEASE
     Dosage: 4 CAPSULES ONCE A DAY
     Route: 048
     Dates: start: 201501
  3. LETROZOLE. [Concomitant]
     Active Substance: LETROZOLE
     Indication: BREAST CANCER
     Route: 048
  4. LISINOPRIL. [Concomitant]
     Active Substance: LISINOPRIL
     Indication: HYPERTENSION
     Route: 048

REACTIONS (4)
  - Back pain [Recovered/Resolved]
  - Eructation [Recovered/Resolved]
  - Off label use [Not Recovered/Not Resolved]
  - Treatment noncompliance [Unknown]

NARRATIVE: CASE EVENT DATE: 20161222
